FAERS Safety Report 18852670 (Version 1)
Quarter: 2021Q1

REPORT INFORMATION
  Report Type: Spontaneous
  Country: IE (occurrence: IE)
  Receive Date: 20210205
  Receipt Date: 20210205
  Transmission Date: 20210420
  Serious: Yes (Other)
  Sender: FDA-Public Use
  Company Number: IE-ACCORD-216155

PATIENT
  Age: 64 Year
  Sex: Male

DRUGS (9)
  1. ATORVASTATIN/ATORVASTATIN CALCIUM [Suspect]
     Active Substance: ATORVASTATIN CALCIUM
     Indication: HYPERCHOLESTEROLAEMIA
     Route: 048
  2. ERGOCALCIFEROL. [Concomitant]
     Active Substance: ERGOCALCIFEROL
  3. EZETIMIBE. [Concomitant]
     Active Substance: EZETIMIBE
     Dates: start: 2020, end: 2021
  4. IRON [Concomitant]
     Active Substance: IRON
  5. FISH OIL [Concomitant]
     Active Substance: FISH OIL
  6. TRITACE [Concomitant]
     Active Substance: RAMIPRIL
  7. LANSOPRAZOLE. [Concomitant]
     Active Substance: LANSOPRAZOLE
  8. BISOP [Concomitant]
  9. NUPRIN [Concomitant]
     Active Substance: IBUPROFEN
     Dosage: STRENGTH: 75MG

REACTIONS (3)
  - Gait inability [Recovered/Resolved]
  - Asthenia [Recovered/Resolved]
  - Pain in extremity [Recovered/Resolved]
